FAERS Safety Report 18030792 (Version 1)
Quarter: 2020Q3

REPORT INFORMATION
  Report Type: Report from Study
  Country: US (occurrence: US)
  Receive Date: 20200715
  Receipt Date: 20200715
  Transmission Date: 20201103
  Serious: Yes (Life-Threatening, Hospitalization, Other)
  Sender: FDA-Public Use
  Company Number: US-ASTRAZENECA-2020SE86002

PATIENT
  Age: 17923 Day
  Sex: Female
  Weight: 90.7 kg

DRUGS (18)
  1. ADVAIR HFA [Concomitant]
     Active Substance: FLUTICASONE PROPIONATE\SALMETEROL XINAFOATE
  2. FASENRA [Suspect]
     Active Substance: BENRALIZUMAB
     Indication: ASTHMA
     Dosage: 30MG/ML EVERY EIGHT WEEKS
     Route: 058
  3. AMOXICILLIN?CLAVULANAT [Concomitant]
  4. ESTRADIOL. [Concomitant]
     Active Substance: ESTRADIOL
  5. MIRTAZAPINE. [Concomitant]
     Active Substance: MIRTAZAPINE
  6. TOBRAMYCIN?DEXAMETHASO [Concomitant]
  7. BUDESONIDE. [Suspect]
     Active Substance: BUDESONIDE
     Dosage: .5 Q4H
     Route: 055
  8. ADVIL [Concomitant]
     Active Substance: IBUPROFEN
  9. EUCERIN [Concomitant]
     Active Substance: ENSULIZOLE\EUCERIN\OCTINOXATE\OCTISALATE\TITANIUM DIOXIDE\ZINC OXIDE
  10. TYLENOL [Concomitant]
     Active Substance: ACETAMINOPHEN
  11. PROAIR HFA [Concomitant]
     Active Substance: ALBUTEROL SULFATE
  12. AZITHROMYCIN ANHYDROUS. [Concomitant]
     Active Substance: AZITHROMYCIN ANHYDROUS
  13. ALBUTEROL SULFATE. [Concomitant]
     Active Substance: ALBUTEROL SULFATE
  14. ESZOPICLONE. [Concomitant]
     Active Substance: ESZOPICLONE
  15. DOXYCYCLINE HYCLATE. [Concomitant]
     Active Substance: DOXYCYCLINE HYCLATE
  16. PREDNISONE. [Concomitant]
     Active Substance: PREDNISONE
  17. GUAIFENESIN?CODEINE [Concomitant]
  18. MONTELUKAST SODIUM. [Concomitant]
     Active Substance: MONTELUKAST SODIUM

REACTIONS (7)
  - Asthma [Unknown]
  - Aphonia [Unknown]
  - Drug ineffective [Unknown]
  - Drug dose omission by device [Unknown]
  - Dyspnoea [Unknown]
  - Sleep disorder [Unknown]
  - Device leakage [Unknown]

NARRATIVE: CASE EVENT DATE: 20190916
